FAERS Safety Report 20310762 (Version 3)
Quarter: 2023Q4

REPORT INFORMATION
  Report Type: Spontaneous
  Country: JP (occurrence: JP)
  Receive Date: 20220107
  Receipt Date: 20231006
  Transmission Date: 20240109
  Serious: Yes (Death, Hospitalization, Other)
  Sender: FDA-Public Use
  Company Number: JP-BAYER-2021A237285

PATIENT
  Age: 65 Year
  Sex: Female
  Weight: 50 kg

DRUGS (12)
  1. IOPROMIDE [Suspect]
     Active Substance: IOPROMIDE
     Indication: Computerised tomogram
     Dosage: 0.6 ML, ONCE
     Route: 042
     Dates: start: 20211022, end: 20211022
  2. IOPROMIDE [Suspect]
     Active Substance: IOPROMIDE
     Indication: Aortic dissection
  3. ASPIRIN [Suspect]
     Active Substance: ASPIRIN
     Indication: Chronic myeloid leukaemia
     Dosage: DAILY DOSE 100 MG
     Route: 048
     Dates: start: 20211021
  4. BISOPROLOL [Concomitant]
     Active Substance: BISOPROLOL\BISOPROLOL FUMARATE
     Indication: Aortic dissection
     Dosage: DAILY DOSE 4 MG
     Route: 062
     Dates: start: 20211020, end: 20211020
  5. NIFEDIPINE [Concomitant]
     Active Substance: NIFEDIPINE
     Indication: Aortic dissection
     Dosage: DAILY DOSE 20 MG
     Route: 048
     Dates: start: 20211020
  6. VONOPRAZAN FUMARATE [Concomitant]
     Active Substance: VONOPRAZAN FUMARATE
     Indication: Aortic dissection
     Dosage: DAILY DOSE 10 MG
     Route: 048
     Dates: start: 20211020
  7. CARVEDILOL [Concomitant]
     Active Substance: CARVEDILOL
     Indication: Aortic dissection
     Dosage: DAILY DOSE 2.5 MG
     Route: 048
     Dates: start: 20211021
  8. ROSUVASTATIN [Concomitant]
     Active Substance: ROSUVASTATIN
     Dosage: DAILY DOSE 2.5 MG
     Route: 048
     Dates: start: 20211021
  9. GLIVEC [Concomitant]
     Active Substance: IMATINIB MESYLATE
     Indication: Chronic myeloid leukaemia
     Dosage: DAILY DOSE 400 MG
     Route: 048
     Dates: start: 20211021
  10. MEDROL [Concomitant]
     Active Substance: METHYLPREDNISOLONE
     Indication: Premedication
     Dosage: DAILY DOSE 24 MG
     Route: 048
     Dates: start: 20211021
  11. MEDROL [Concomitant]
     Active Substance: METHYLPREDNISOLONE
     Indication: Premedication
     Dosage: DAILY DOSE 24 MG
     Route: 048
     Dates: start: 20211022
  12. NICARDIPINE HYDROCHLORIDE [Concomitant]
     Active Substance: NICARDIPINE HYDROCHLORIDE
     Indication: Blood pressure management
     Dosage: UNK
     Dates: start: 20211020

REACTIONS (11)
  - Anaphylactic shock [Fatal]
  - Hypoxic-ischaemic encephalopathy [None]
  - Renal failure [None]
  - Nausea [Fatal]
  - Loss of consciousness [Fatal]
  - Blood pressure decreased [Fatal]
  - Pulse abnormal [Fatal]
  - Shock [Fatal]
  - Contraindicated product administered [None]
  - Documented hypersensitivity to administered product [None]
  - Off label use [None]

NARRATIVE: CASE EVENT DATE: 20211021
